FAERS Safety Report 9164884 (Version 1)
Quarter: 2013Q1

REPORT INFORMATION
  Report Type: Spontaneous
  Country: US (occurrence: None)
  Receive Date: 20130228
  Receipt Date: 20130228
  Transmission Date: 20140127
  Serious: Yes (Hospitalization)
  Sender: FDA-Public Use
  Company Number: 2013HINLIT0018

PATIENT
  Age: 40 Year
  Sex: Female

DRUGS (2)
  1. EFAVIRENZ [Suspect]
     Indication: ANTIRETROVIRAL THERAPY
  2. TENOFOVIR [Suspect]
     Indication: ANTIRETROVIRAL THERAPY

REACTIONS (20)
  - Lactic acidosis [None]
  - Hepatomegaly [None]
  - Multi-organ failure [None]
  - Sepsis [None]
  - Back pain [None]
  - Asthenia [None]
  - Pain [None]
  - Decreased appetite [None]
  - Lethargy [None]
  - Bradycardia [None]
  - Hypotension [None]
  - Hypoglycaemia [None]
  - Oxygen saturation decreased [None]
  - Metabolic acidosis [None]
  - No therapeutic response [None]
  - Staphylococcus test positive [None]
  - Cardiac enzymes increased [None]
  - Alanine aminotransferase increased [None]
  - Aspartate aminotransferase increased [None]
  - Hypoperfusion [None]
